FAERS Safety Report 9227714 (Version 1)
Quarter: 2013Q2

REPORT INFORMATION
  Report Type: Spontaneous
  Country: US (occurrence: US)
  Receive Date: 20130412
  Receipt Date: 20130412
  Transmission Date: 20140414
  Serious: Yes (Other)
  Sender: FDA-Public Use
  Company Number: US-BRISTOL-MYERS SQUIBB COMPANY-18771311

PATIENT
  Age: 57 Year
  Sex: Male

DRUGS (9)
  1. BYDUREON 2MG SUSPENSION [Suspect]
     Route: 058
     Dates: start: 20130408
  2. METFORMIN HCL [Concomitant]
  3. L-THYROXINE [Concomitant]
  4. QUINAPRIL [Concomitant]
  5. HYDROCHLOROTHIAZIDE [Concomitant]
  6. GLIPIZIDE [Concomitant]
  7. ACTOS [Concomitant]
  8. JANUVIA [Concomitant]
  9. VITAMINS [Concomitant]

REACTIONS (3)
  - Swelling face [Not Recovered/Not Resolved]
  - Local swelling [Not Recovered/Not Resolved]
  - Pharyngeal oedema [Not Recovered/Not Resolved]
